FAERS Safety Report 25285277 (Version 4)
Quarter: 2025Q2

REPORT INFORMATION
  Report Type: Spontaneous
  Country: US (occurrence: US)
  Receive Date: 20250509
  Receipt Date: 20250605
  Transmission Date: 20250716
  Serious: No
  Sender: UNITED THERAPEUTICS
  Company Number: US-UNITED THERAPEUTICS-UNT-2025-014980

PATIENT
  Age: 62 Year
  Sex: Female
  Weight: 65.76 kg

DRUGS (10)
  1. REMODULIN [Suspect]
     Active Substance: TREPROSTINIL
     Indication: Pulmonary arterial hypertension
     Route: 041
  2. REMODULIN [Suspect]
     Active Substance: TREPROSTINIL
     Indication: Connective tissue disorder
     Route: 041
  3. REMODULIN [Suspect]
     Active Substance: TREPROSTINIL
     Route: 041
  4. SODIUM CHLORIDE [Concomitant]
     Active Substance: SODIUM CHLORIDE
     Indication: Product used for unknown indication
  5. SILDENAFIL [Concomitant]
     Active Substance: SILDENAFIL
     Indication: Product used for unknown indication
  6. HYDROXYCHLOROQUINE SULFATE [Concomitant]
     Active Substance: HYDROXYCHLOROQUINE SULFATE
     Indication: Product used for unknown indication
  7. ACETAMINOPHEN [Concomitant]
     Active Substance: ACETAMINOPHEN
     Indication: Product used for unknown indication
  8. IBUPROFEN [Concomitant]
     Active Substance: IBUPROFEN
     Indication: Product used for unknown indication
  9. IMODIUM [Concomitant]
     Active Substance: LOPERAMIDE HYDROCHLORIDE
     Indication: Product used for unknown indication
  10. XANAX [Concomitant]
     Active Substance: ALPRAZOLAM
     Indication: Product used for unknown indication

REACTIONS (11)
  - Diarrhoea [Recovering/Resolving]
  - Nausea [Recovering/Resolving]
  - Back pain [Recovering/Resolving]
  - Pain in extremity [Not Recovered/Not Resolved]
  - Decreased appetite [Recovering/Resolving]
  - Anxiety [Recovering/Resolving]
  - Panic attack [Unknown]
  - Headache [Unknown]
  - Tremor [Unknown]
  - Hypertension [Recovering/Resolving]
  - Palpitations [Recovering/Resolving]

NARRATIVE: CASE EVENT DATE: 20250401
